FAERS Safety Report 6807491-7 (Version None)
Quarter: 2010Q2

REPORT INFORMATION
  Report Type: 
  Country: None (occurrence: None)
  Receive Date: 20100629
  Receipt Date: 20081016
  Transmission Date: 20101027
  Serious: Yes (Other)
  Sender: FDA-Public Use
  Company Number: US-PFIZER INC-2008087460

PATIENT
  Sex: Female
  Weight: 87 kg

DRUGS (4)
  1. BEXTRA [Suspect]
     Indication: ARTHRITIS
     Dates: start: 20040609, end: 20040613
  2. BEXTRA [Suspect]
     Indication: NECK PAIN
  3. BEXTRA [Suspect]
     Indication: BACK PAIN
  4. VERAPAMIL [Concomitant]
     Indication: CARDIAC DISORDER

REACTIONS (2)
  - OEDEMA PERIPHERAL [None]
  - PAIN IN EXTREMITY [None]
